FAERS Safety Report 24975397 (Version 1)
Quarter: 2025Q1

REPORT INFORMATION
  Report Type: Spontaneous
  Country: IL (occurrence: IL)
  Receive Date: 20250217
  Receipt Date: 20250217
  Transmission Date: 20250408
  Serious: Yes (Other)
  Sender: TAKEDA
  Company Number: IL-TAKEDA-2025TUS016378

PATIENT
  Age: 70 Year
  Sex: Female

DRUGS (2)
  1. BRIGATINIB [Suspect]
     Active Substance: BRIGATINIB
     Indication: Product used for unknown indication
  2. LORLATINIB [Suspect]
     Active Substance: LORLATINIB
     Indication: Product used for unknown indication

REACTIONS (4)
  - Metastases to central nervous system [Unknown]
  - Hallucination [Recovered/Resolved]
  - Pneumonitis [Recovered/Resolved]
  - Drug ineffective [Unknown]
